FAERS Safety Report 5297646-8 (Version None)
Quarter: 2007Q2

REPORT INFORMATION
  Report Type: 
  Country: None (occurrence: None)
  Receive Date: 20070416
  Receipt Date: 20070413
  Transmission Date: 20071010
  Serious: Yes (Hospitalization)
  Sender: FDA-Public Use
  Company Number: 2007CG00510

PATIENT
  Age: 44 Year
  Sex: Male
  Weight: 100 kg

DRUGS (5)
  1. ATACAND [Suspect]
     Indication: ESSENTIAL HYPERTENSION
     Route: 048
     Dates: start: 20060719
  2. ESIDRIX [Suspect]
     Indication: ESSENTIAL HYPERTENSION
     Route: 048
     Dates: start: 20060719, end: 20070305
  3. ALLOPURINOL [Suspect]
     Route: 048
  4. PRAVASTATIN SODIUM [Suspect]
     Indication: HYPERLIPIDAEMIA
     Route: 048
     Dates: start: 20060719, end: 20070305
  5. INIPOMP [Suspect]
     Route: 048
     Dates: start: 20060719, end: 20070223

REACTIONS (1)
  - PANCREATITIS ACUTE [None]
